FAERS Safety Report 12238979 (Version 1)
Quarter: 2016Q2

REPORT INFORMATION
  Report Type: Spontaneous
  Country: US (occurrence: US)
  Receive Date: 20160405
  Receipt Date: 20160405
  Transmission Date: 20160815
  Serious: No
  Sender: FDA-Public Use
  Company Number: US-ASTRAZENECA-2016SE33025

PATIENT
  Sex: Female
  Weight: 101.2 kg

DRUGS (10)
  1. FARXIGA [Suspect]
     Active Substance: DAPAGLIFLOZIN PROPANEDIOL
     Indication: DIABETES MELLITUS
     Dosage: UNKNOWN, EVERY DAY
     Route: 048
  2. METFORMIN [Concomitant]
     Active Substance: METFORMIN HYDROCHLORIDE
  3. TOBRAMAX [Concomitant]
     Indication: MIGRAINE
     Route: 048
  4. GLIPIZIDE. [Concomitant]
     Active Substance: GLIPIZIDE
  5. COQ10 [Concomitant]
     Active Substance: UBIDECARENONE
     Route: 048
  6. LANTUS [Concomitant]
     Active Substance: INSULIN GLARGINE
  7. VERAPAMIL [Concomitant]
     Active Substance: VERAPAMIL HYDROCHLORIDE
     Dosage: THREE TIMES A DAY
     Route: 048
  8. NUMENDA [Concomitant]
     Route: 048
  9. MAGNESIUM [Concomitant]
     Active Substance: MAGNESIUM
     Dosage: DAILY
     Route: 048
  10. ACTOS [Concomitant]
     Active Substance: PIOGLITAZONE HYDROCHLORIDE

REACTIONS (1)
  - Dysphagia [Unknown]
